FAERS Safety Report 12184842 (Version 4)
Quarter: 2016Q2

REPORT INFORMATION
  Report Type: Spontaneous
  Country: TR (occurrence: TR)
  Receive Date: 20160316
  Receipt Date: 20160418
  Transmission Date: 20160815
  Serious: Yes (Death, Hospitalization, Other)
  Sender: FDA-Public Use
  Company Number: TR-ACTAVIS-2016-05218

PATIENT
  Age: 46 Year
  Sex: Male

DRUGS (10)
  1. FENTANYL (UNKNOWN) [Suspect]
     Active Substance: FENTANYL
     Indication: PRODUCT USED FOR UNKNOWN INDICATION
     Dosage: 25 MCG/HR, UNKNOWN
     Route: 062
  2. CAPECITABINE. [Concomitant]
     Active Substance: CAPECITABINE
     Indication: OESOPHAGEAL ADENOCARCINOMA
     Dosage: UNK UNK, CYCLICAL, 3 CYCLES
     Route: 065
  3. PARACETAMOL [Concomitant]
     Active Substance: ACETAMINOPHEN
     Indication: PRODUCT USED FOR UNKNOWN INDICATION
     Dosage: UNK UNK, UNKNOWN
     Route: 051
  4. SEVOFLURANE. [Suspect]
     Active Substance: SEVOFLURANE
     Indication: ANAESTHESIA
     Dosage: UNK
     Route: 065
  5. TRAMADOL (UNKNOWN) [Suspect]
     Active Substance: TRAMADOL
     Indication: PRODUCT USED FOR UNKNOWN INDICATION
     Dosage: 100 MG, UNKNOWN
     Route: 030
  6. DOCETAXEL. [Concomitant]
     Active Substance: DOCETAXEL
     Dosage: UNK UNK, CYCLICAL, 2 CYCLES
     Route: 065
  7. CISPLATIN (UNKNOWN) [Suspect]
     Active Substance: CISPLATIN
     Indication: OESOPHAGEAL ADENOCARCINOMA
     Dosage: UNK UNK, CYCLICAL, 3 CYCLES
     Route: 065
  8. DOCETAXEL. [Concomitant]
     Active Substance: DOCETAXEL
     Indication: OESOPHAGEAL ADENOCARCINOMA
     Dosage: UNK UNK, CYCLICAL, 3 CYCLES
     Route: 065
  9. CAPECITABINE. [Concomitant]
     Active Substance: CAPECITABINE
     Dosage: UNK UNK, CYCLICAL, 2 CYCLES
     Route: 065
  10. CARBOPLATIN. [Concomitant]
     Active Substance: CARBOPLATIN
     Indication: OESOPHAGEAL ADENOCARCINOMA
     Dosage: UNK UNK, CYCLICAL, 2 CYCLES
     Route: 065

REACTIONS (5)
  - Diabetes insipidus [Not Recovered/Not Resolved]
  - Tinnitus [Unknown]
  - Confusional state [Unknown]
  - Brain death [Fatal]
  - Somnolence [Unknown]
